FAERS Safety Report 9648308 (Version 1)
Quarter: 2013Q4

REPORT INFORMATION
  Report Type: Spontaneous
  Country: US (occurrence: None)
  Receive Date: 20131025
  Receipt Date: 20131025
  Transmission Date: 20140711
  Serious: Yes (Other)
  Sender: FDA-Public Use
  Company Number: None

PATIENT
  Age: 31 Year
  Sex: Female

DRUGS (1)
  1. IMPLANON [Suspect]
     Dates: start: 20090908, end: 20120908

REACTIONS (14)
  - Depression [None]
  - Weight increased [None]
  - Hair growth abnormal [None]
  - Pain [None]
  - Restlessness [None]
  - Sleep disorder due to general medical condition, insomnia type [None]
  - Amenorrhoea [None]
  - Personality change [None]
  - Nervousness [None]
  - Impatience [None]
  - Migraine [None]
  - Dizziness [None]
  - Non-consummation [None]
  - Infertility female [None]
